FAERS Safety Report 21472648 (Version 1)
Quarter: 2022Q4

REPORT INFORMATION
  Report Type: Spontaneous
  Country: CH (occurrence: CH)
  Receive Date: 20221018
  Receipt Date: 20221018
  Transmission Date: 20230113
  Serious: Yes (Other)
  Sender: FDA-Public Use
  Company Number: None

PATIENT
  Age: 41 Year
  Sex: Female

DRUGS (14)
  1. PANTOPRAZOLE SODIUM [Suspect]
     Active Substance: PANTOPRAZOLE SODIUM
     Indication: Product used for unknown indication
     Dosage: 40 MILLIGRAM DAILY;
     Route: 065
     Dates: start: 20220726
  2. CAPECITABINE [Suspect]
     Active Substance: CAPECITABINE
     Indication: Adenocarcinoma of appendix
     Dosage: 3300 MILLIGRAM DAILY;
     Route: 048
     Dates: start: 20220727, end: 20220805
  3. CAPECITABINE [Suspect]
     Active Substance: CAPECITABINE
     Dosage: 3300 MILLIGRAM DAILY;
     Route: 048
     Dates: start: 20220825, end: 20220907
  4. TRASTUZUMAB [Suspect]
     Active Substance: TRASTUZUMAB
     Indication: Adenocarcinoma of appendix
     Dosage: 600 MILLIGRAM DAILY;
     Route: 042
     Dates: start: 20220727, end: 20220727
  5. TRASTUZUMAB [Suspect]
     Active Substance: TRASTUZUMAB
     Dosage: 600 MILLIGRAM DAILY;
     Route: 042
     Dates: start: 20220825, end: 20220825
  6. TUCATINIB [Suspect]
     Active Substance: TUCATINIB
     Indication: Adenocarcinoma of appendix
     Dosage: 600 MILLIGRAM DAILY;
     Route: 042
     Dates: start: 20220727, end: 20220808
  7. TUCATINIB [Suspect]
     Active Substance: TUCATINIB
     Dosage: 300 MILLIGRAM DAILY;
     Route: 048
     Dates: start: 20220825, end: 20220914
  8. HERBALS [Suspect]
     Active Substance: HERBALS
     Indication: Product used for unknown indication
     Route: 065
     Dates: end: 20220915
  9. BETAHISTINE [Concomitant]
     Active Substance: BETAHISTINE
     Indication: Product used for unknown indication
     Dates: start: 20220824
  10. DEXAMETHASONE [Concomitant]
     Active Substance: DEXAMETHASONE
     Indication: Product used for unknown indication
     Dosage: IN DECREASING DOSES
     Dates: start: 20220603
  11. VITAMIN D3 [Concomitant]
     Active Substance: CHOLECALCIFEROL
     Indication: Product used for unknown indication
  12. VITAMIN K [Concomitant]
     Active Substance: PHYTONADIONE
     Indication: Product used for unknown indication
  13. MAGNESIUM [Concomitant]
     Active Substance: MAGNESIUM
     Indication: Product used for unknown indication
  14. CALCIUM [Concomitant]
     Active Substance: CALCIUM
     Indication: Product used for unknown indication

REACTIONS (1)
  - Hepatocellular injury [Not Recovered/Not Resolved]

NARRATIVE: CASE EVENT DATE: 20220915
